FAERS Safety Report 18323125 (Version 1)
Quarter: 2020Q3

REPORT INFORMATION
  Report Type: Spontaneous
  Country: US (occurrence: US)
  Receive Date: 20200928
  Receipt Date: 20200928
  Transmission Date: 20201103
  Serious: Yes (Hospitalization)
  Sender: FDA-Public Use
  Company Number: None

PATIENT
  Sex: Male
  Weight: 8.8 kg

DRUGS (5)
  1. 5?FLUOROURACIL (5?FU) (19893) [Suspect]
     Active Substance: FLUOROURACIL
     Dates: end: 20200814
  2. VINCRISTINE SULFATE. [Suspect]
     Active Substance: VINCRISTINE SULFATE
     Dates: end: 20200820
  3. DOXORUBICIN HYDROCHLORIDE. [Suspect]
     Active Substance: DOXORUBICIN HYDROCHLORIDE
     Dates: end: 20200814
  4. CISPLATIN. [Suspect]
     Active Substance: CISPLATIN
     Dates: end: 20200814
  5. ZINECARD [Suspect]
     Active Substance: DEXRAZOXANE HYDROCHLORIDE
     Dates: end: 20200814

REACTIONS (15)
  - Anion gap decreased [None]
  - Pyrexia [None]
  - Nausea [None]
  - Vomiting [None]
  - Red blood cell count decreased [None]
  - Febrile neutropenia [None]
  - Haematocrit decreased [None]
  - Haemoglobin decreased [None]
  - Dermatitis diaper [None]
  - Blood chloride decreased [None]
  - Blood chloride increased [None]
  - Diarrhoea [None]
  - White blood cell count decreased [None]
  - Blood sodium decreased [None]
  - Tachycardia [None]

NARRATIVE: CASE EVENT DATE: 20200909
